FAERS Safety Report 14015152 (Version 1)
Quarter: 2017Q3

REPORT INFORMATION
  Report Type: Spontaneous
  Country: PT (occurrence: PT)
  Receive Date: 20170927
  Receipt Date: 20170927
  Transmission Date: 20171128
  Serious: Yes (Other)
  Sender: FDA-Public Use
  Company Number: PT-LPDUSPRD-20161174

PATIENT
  Age: 35 Year
  Sex: Female

DRUGS (1)
  1. FERINJECT [Suspect]
     Active Substance: FERRIC CARBOXYMALTOSE
     Dosage: 500 MG
     Route: 041
     Dates: start: 20170627

REACTIONS (9)
  - Dyspnoea at rest [Unknown]
  - Maternal exposure during pregnancy [Unknown]
  - Pyrexia [Unknown]
  - Chest discomfort [Unknown]
  - Decreased appetite [Unknown]
  - Rash [Unknown]
  - Skin discolouration [Unknown]
  - Hyperaemia [Unknown]
  - Rash maculo-papular [Unknown]

NARRATIVE: CASE EVENT DATE: 20160626
